FAERS Safety Report 6047733-1 (Version None)
Quarter: 2009Q1

REPORT INFORMATION
  Report Type: 
  Country: None (occurrence: None)
  Receive Date: 20090123
  Receipt Date: 20090114
  Transmission Date: 20090719
  Serious: Yes (Hospitalization)
  Sender: FDA-Public Use
  Company Number: JP-JNJFOC-20090104097

PATIENT
  Age: 17 Year
  Sex: Male

DRUGS (2)
  1. RISPERDAL [Suspect]
     Indication: SCHIZOPHRENIA
     Route: 048
  2. RISPERDAL [Suspect]
     Indication: AUTISM SPECTRUM DISORDER
     Route: 048

REACTIONS (4)
  - CATATONIA [None]
  - DEVELOPMENTAL DELAY [None]
  - HALLUCINATION [None]
  - NEUROLEPTIC MALIGNANT SYNDROME [None]
